FAERS Safety Report 13111298 (Version 2)
Quarter: 2017Q2

REPORT INFORMATION
  Report Type: Spontaneous
  Country: FR (occurrence: FR)
  Receive Date: 20170112
  Receipt Date: 20170406
  Transmission Date: 20170830
  Serious: Yes (Other)
  Sender: FDA-Public Use
  Company Number: FR-009507513-1701FRA005352

PATIENT
  Age: 34 Year
  Sex: Male

DRUGS (5)
  1. PIPERACILLIN AND TAZOBACTAM [Concomitant]
     Active Substance: PIPERACILLIN SODIUM\TAZOBACTAM SODIUM
     Indication: CITROBACTER INFECTION
  2. CUBICIN [Suspect]
     Active Substance: DAPTOMYCIN
     Indication: ABDOMINAL INFECTION
     Dosage: INFUSION, ONCE
     Dates: start: 20161222
  3. AZACTAM [Suspect]
     Active Substance: AZTREONAM
     Indication: ABDOMINAL INFECTION
     Dosage: 3 INFUSIONS BETWEEN 22-DEC-2016 AND 23-DEC-2016
     Dates: start: 20161222, end: 20161223
  4. TARGOCID [Concomitant]
     Active Substance: TEICOPLANIN
     Indication: PERITONITIS
     Dosage: 600 MG, QD
     Route: 042
     Dates: start: 20161209, end: 20161220
  5. PIPERACILLIN AND TAZOBACTAM [Concomitant]
     Active Substance: PIPERACILLIN SODIUM\TAZOBACTAM SODIUM
     Indication: PERITONITIS
     Dosage: 4 G, Q8H
     Route: 042
     Dates: start: 20161125, end: 20161221

REACTIONS (3)
  - Dermatitis exfoliative [Recovered/Resolved]
  - Lymphadenopathy [Unknown]
  - Eosinophilia [Recovering/Resolving]

NARRATIVE: CASE EVENT DATE: 20161223
